FAERS Safety Report 10783705 (Version 1)
Quarter: 2015Q1

REPORT INFORMATION
  Report Type: Spontaneous
  Country: CA (occurrence: CA)
  Receive Date: 20150210
  Receipt Date: 20150210
  Transmission Date: 20150721
  Serious: Yes (Hospitalization, Other)
  Sender: FDA-Public Use
  Company Number: CA-GLAXOSMITHKLINE-CA2015GSK016024

PATIENT
  Age: 73 Year
  Sex: Male

DRUGS (11)
  1. LOW DOSE ASPIRIN [Concomitant]
     Active Substance: ASPIRIN
  2. BRICANYL [Concomitant]
     Active Substance: TERBUTALINE SULFATE
     Dosage: UNK
  3. FUROSEMIDE. [Concomitant]
     Active Substance: FUROSEMIDE
     Dosage: UNK
     Route: 048
  4. EZETROL [Concomitant]
     Active Substance: EZETIMIBE
  5. SPIRIVA [Concomitant]
     Active Substance: TIOTROPIUM BROMIDE MONOHYDRATE
     Dosage: 1 UNK, QD
  6. PROSCAR [Concomitant]
     Active Substance: FINASTERIDE
  7. ADVAIR DISKUS [Suspect]
     Active Substance: FLUTICASONE PROPIONATE\SALMETEROL XINAFOATE
     Indication: ASTHMA
     Dosage: 2 PUFF(S), BID
     Route: 055
  8. ADVAIR DISKUS [Suspect]
     Active Substance: FLUTICASONE PROPIONATE\SALMETEROL XINAFOATE
     Indication: CHRONIC OBSTRUCTIVE PULMONARY DISEASE
  9. RABEPRAZOLE [Concomitant]
     Active Substance: RABEPRAZOLE
  10. COZAAR [Concomitant]
     Active Substance: LOSARTAN POTASSIUM
  11. DIAMICRON [Concomitant]
     Active Substance: GLICLAZIDE
     Dosage: 30 MG, QD
     Route: 048

REACTIONS (5)
  - Pneumonia [Unknown]
  - Influenza [Unknown]
  - Peripheral swelling [Recovering/Resolving]
  - Dysuria [Recovered/Resolved]
  - Prostatomegaly [Unknown]

NARRATIVE: CASE EVENT DATE: 201405
